FAERS Safety Report 9058748 (Version 1)
Quarter: 2013Q1

REPORT INFORMATION
  Report Type: Spontaneous
  Country: IN (occurrence: IN)
  Receive Date: 20130204
  Receipt Date: 20130204
  Transmission Date: 20140127
  Serious: Yes (Hospitalization, Other)
  Sender: FDA-Public Use
  Company Number: IN-JHP PHARMACEUTICALS, LLC-JHP201300043

PATIENT
  Sex: Female

DRUGS (3)
  1. PITOCIN [Suspect]
     Indication: POSTPARTUM HAEMORRHAGE
  2. PROSTAGLANDIN A1 [Suspect]
     Indication: POSTPARTUM HAEMORRHAGE
  3. PROSTAGLANDIN E1 [Suspect]
     Indication: POSTPARTUM HAEMORRHAGE

REACTIONS (2)
  - Postpartum haemorrhage [Recovered/Resolved]
  - Drug ineffective [Recovered/Resolved]
